FAERS Safety Report 8598514-6 (Version None)
Quarter: 2012Q3

REPORT INFORMATION
  Report Type: 
  Country: None (occurrence: None)
  Receive Date: 20120816
  Receipt Date: 20120801
  Transmission Date: 20120928
  Serious: Yes (Other)
  Sender: FDA-Public Use
  Company Number: US-ROCHE-1095925

PATIENT
  Sex: Male

DRUGS (3)
  1. TEMODAR [Concomitant]
     Indication: GLIOBLASTOMA
  2. AVASTIN [Suspect]
     Indication: GLIOBLASTOMA
     Route: 042
     Dates: start: 20060101, end: 20090701
  3. AVASTIN [Suspect]
     Dates: start: 20100101

REACTIONS (8)
  - URINARY RETENTION [None]
  - STRESS [None]
  - RECURRENT CANCER [None]
  - PARTIAL SEIZURES [None]
  - CONVULSION [None]
  - NEOPLASM RECURRENCE [None]
  - CYSTITIS [None]
  - ACUTE STRESS DISORDER [None]
